FAERS Safety Report 10251415 (Version 1)
Quarter: 2014Q2

REPORT INFORMATION
  Report Type: Spontaneous
  Country: US (occurrence: US)
  Receive Date: 20140623
  Receipt Date: 20140623
  Transmission Date: 20141212
  Serious: No
  Sender: FDA-Public Use
  Company Number: US-B.I. PHARMACEUTICALS,INC./RIDGEFIELD-2014-BI-27002BP

PATIENT
  Age: 12 Year
  Sex: Female
  Weight: 27 kg

DRUGS (2)
  1. CATAPRES TTS [Suspect]
     Indication: HYPERTENSION
     Dosage: 0.2 MG
     Route: 061
     Dates: start: 201306, end: 201401
  2. CATAPRES TTS [Suspect]
     Dosage: 0.1 MG
     Route: 061
     Dates: start: 201401

REACTIONS (1)
  - Off label use [Unknown]
